FAERS Safety Report 9423627 (Version 1)
Quarter: 2013Q3

REPORT INFORMATION
  Report Type: Spontaneous
  Country: US (occurrence: US)
  Receive Date: 20130726
  Receipt Date: 20130726
  Transmission Date: 20140515
  Serious: Yes (Death)
  Sender: FDA-Public Use
  Company Number: US-TMC-CABO-13003014

PATIENT
  Age: 50 Year
  Sex: Male

DRUGS (1)
  1. COMETRIQ [Suspect]
     Indication: MALIGNANT NEOPLASM OF EYE
     Dosage: 140 MG, QD
     Route: 048
     Dates: start: 20130524, end: 20130711

REACTIONS (1)
  - Death [Fatal]
